FAERS Safety Report 5355512-3 (Version None)
Quarter: 2007Q2

REPORT INFORMATION
  Report Type: 
  Country: None (occurrence: None)
  Receive Date: 20070613
  Receipt Date: 20070607
  Transmission Date: 20071010
  Serious: Yes (Death)
  Sender: FDA-Public Use
  Company Number: CN-AVENTIS-200715137GDDC

PATIENT
  Age: 80 Year
  Sex: Male
  Weight: 60 kg

DRUGS (4)
  1. TAXOTERE [Suspect]
     Route: 042
     Dates: start: 20070122, end: 20070507
  2. TAXOTERE [Suspect]
  3. PREDNISONE TAB [Suspect]
     Route: 048
     Dates: start: 20070122, end: 20070516
  4. AMLODIPINE BESYLATE [Concomitant]
     Indication: HYPERTENSION
     Route: 048
     Dates: start: 20070503, end: 20070519

REACTIONS (5)
  - HYPOALBUMINAEMIA [None]
  - INTESTINAL OBSTRUCTION [None]
  - MULTI-ORGAN FAILURE [None]
  - PERITONEAL INFECTION [None]
  - PNEUMONIA [None]
